FAERS Safety Report 18323383 (Version 1)
Quarter: 2020Q3

REPORT INFORMATION
  Report Type: Spontaneous
  Country: US (occurrence: US)
  Receive Date: 20200929
  Receipt Date: 20200929
  Transmission Date: 20201103
  Serious: No
  Sender: FDA-Public Use
  Company Number: None

PATIENT
  Age: 38 Year
  Sex: Male
  Weight: 99.8 kg

DRUGS (8)
  1. CEFTRIAXONE 2 GM IV Q24H [Concomitant]
     Dates: start: 20200922, end: 20200926
  2. ENOXAPARIN SQ [Concomitant]
     Dates: start: 20200922, end: 20200927
  3. DEXAMETHASONE 6 MG IV Q24H [Concomitant]
     Dates: start: 20200922, end: 20200926
  4. FUROSEMIDE. [Concomitant]
     Active Substance: FUROSEMIDE
     Dates: start: 20200923, end: 20200923
  5. REMDESIVIR. [Suspect]
     Active Substance: REMDESIVIR
     Indication: COVID-19
     Dosage: ?          OTHER FREQUENCY:ONCE;?
     Route: 042
     Dates: start: 20200923, end: 20200923
  6. CEFEPIME 2 GM IV Q8H [Concomitant]
     Dates: start: 20200922, end: 20200923
  7. AZITHROMYCIN 500 MG IV Q24H [Concomitant]
     Dates: start: 20200922, end: 20200926
  8. VANCOMYCIN [Concomitant]
     Active Substance: VANCOMYCIN
     Dates: start: 20200922, end: 20200923

REACTIONS (1)
  - Liver function test increased [None]

NARRATIVE: CASE EVENT DATE: 20200924
